FAERS Safety Report 22271867 (Version 2)
Quarter: 2023Q2

REPORT INFORMATION
  Report Type: Other
  Country: US (occurrence: None)
  Receive Date: 20230502
  Receipt Date: 20230511
  Transmission Date: 20230721
  Serious: Yes (Hospitalization)
  Sender: FDA-Public Use
  Company Number: US-ROCHE-3335483

PATIENT
  Age: 62 Year
  Sex: Male

DRUGS (3)
  1. PULMOZYME [Suspect]
     Active Substance: DORNASE ALFA
     Indication: Bronchiectasis
     Dosage: NEBULIZE THE CONTENTS OF 1 VIALS ONCE A DAY
     Route: 055
  2. PULMOZYME [Suspect]
     Active Substance: DORNASE ALFA
     Indication: Sjogren^s syndrome
  3. PULMOZYME [Suspect]
     Active Substance: DORNASE ALFA
     Indication: Pulmonary fibrosis

REACTIONS (3)
  - Off label use [Unknown]
  - Pneumonia [Unknown]
  - Lung disorder [Unknown]
